FAERS Safety Report 23383382 (Version 1)
Quarter: 2024Q1

REPORT INFORMATION
  Report Type: Spontaneous
  Country: US (occurrence: US)
  Receive Date: 20240109
  Receipt Date: 20240109
  Transmission Date: 20240410
  Serious: No
  Sender: FDA-Public Use
  Company Number: US-SA-SAC20240103000127

PATIENT
  Age: 35 Year
  Sex: Male
  Weight: 99.7 kg

DRUGS (1)
  1. DUPIXENT [Suspect]
     Active Substance: DUPILUMAB
     Indication: Eosinophilic oesophagitis
     Dosage: 300MG QW
     Route: 058
     Dates: start: 20231004

REACTIONS (3)
  - Hyperhidrosis [Unknown]
  - Injection site vesicles [Unknown]
  - Injection site pain [Unknown]

NARRATIVE: CASE EVENT DATE: 20230101
